FAERS Safety Report 25406647 (Version 2)
Quarter: 2025Q3

REPORT INFORMATION
  Report Type: Spontaneous
  Country: US (occurrence: US)
  Receive Date: 20250606
  Receipt Date: 20250904
  Transmission Date: 20251021
  Serious: Yes (Hospitalization, Other)
  Sender: BRISTOL-MYERS SQUIBB COMPANY
  Company Number: US-BRISTOL-MYERS SQUIBB COMPANY-2025-080142

PATIENT
  Age: 9 Decade

DRUGS (1)
  1. NIVOLUMAB [Suspect]
     Active Substance: NIVOLUMAB
     Indication: Malignant melanoma
     Route: 042

REACTIONS (3)
  - Immune-mediated lung disease [Recovered/Resolved]
  - Immune thrombocytopenia [Unknown]
  - Haemolytic anaemia [Unknown]
